FAERS Safety Report 6500031-1 (Version None)
Quarter: 2009Q4

REPORT INFORMATION
  Report Type: 
  Country: None (occurrence: None)
  Receive Date: 20091216
  Receipt Date: 20091209
  Transmission Date: 20100525
  Serious: Yes (Other)
  Sender: FDA-Public Use
  Company Number: CA-JNJFOC-20091202766

PATIENT
  Sex: Male
  Weight: 67.5 kg

DRUGS (2)
  1. REMICADE [Suspect]
     Route: 042
     Dates: start: 20091112, end: 20091204
  2. REMICADE [Suspect]
     Indication: COLITIS ULCERATIVE
     Route: 042
     Dates: start: 20091112, end: 20091204

REACTIONS (8)
  - BODY TEMPERATURE INCREASED [None]
  - CHEST DISCOMFORT [None]
  - CHILLS [None]
  - FLUSHING [None]
  - HEART RATE INCREASED [None]
  - INFUSION RELATED REACTION [None]
  - MYALGIA [None]
  - RASH PRURITIC [None]
